FAERS Safety Report 4805818-9 (Version None)
Quarter: 2005Q4

REPORT INFORMATION
  Report Type: 
  Country: None (occurrence: None)
  Receive Date: 20051019
  Receipt Date: 20051010
  Transmission Date: 20060501
  Serious: Yes (Hospitalization)
  Sender: FDA-Public Use
  Company Number: 2005-10-0436

PATIENT
  Sex: Male

DRUGS (1)
  1. TEMODAR [Suspect]
     Dosage: ORAL
     Route: 048

REACTIONS (7)
  - COGNITIVE DISORDER [None]
  - DYSGRAPHIA [None]
  - MEMORY IMPAIRMENT [None]
  - NEUROLOGICAL SYMPTOM [None]
  - POVERTY OF THOUGHT CONTENT [None]
  - READING DISORDER [None]
  - TEARFULNESS [None]
